FAERS Safety Report 19692788 (Version 1)
Quarter: 2021Q3

REPORT INFORMATION
  Report Type: Spontaneous
  Country: AU (occurrence: AU)
  Receive Date: 20210813
  Receipt Date: 20210813
  Transmission Date: 20211014
  Serious: Yes (Other)
  Sender: FDA-Public Use
  Company Number: AU-SUN PHARMACEUTICAL INDUSTRIES LTD-2021R1-280219

PATIENT
  Sex: Female
  Weight: 80 kg

DRUGS (1)
  1. VECURONIUM [Suspect]
     Active Substance: VECURONIUM BROMIDE
     Indication: PRODUCT USED FOR UNKNOWN INDICATION
     Dosage: 10 MILLIGRAM
     Route: 065
     Dates: start: 20210203, end: 20210203

REACTIONS (2)
  - Idiosyncratic drug reaction [Unknown]
  - Paralysis [Unknown]

NARRATIVE: CASE EVENT DATE: 20210203
